FAERS Safety Report 5912126-1 (Version None)
Quarter: 2008Q4

REPORT INFORMATION
  Report Type: 
  Country: None (occurrence: None)
  Receive Date: 20081006
  Receipt Date: 20080920
  Transmission Date: 20090506
  Serious: Yes (Death, Hospitalization)
  Sender: FDA-Public Use
  Company Number: MPS1-1000105

PATIENT
  Age: 42 Year
  Sex: Male

DRUGS (1)
  1. ALDURAZYME [Suspect]
     Indication: MUCOPOLYSACCHARIDOSIS I
     Dosage: INTRATHECAL
     Route: 037
     Dates: end: 20071201

REACTIONS (7)
  - BLOOD PRESSURE DECREASED [None]
  - CARDIAC DISORDER [None]
  - ENDOTRACHEAL INTUBATION COMPLICATION [None]
  - GENERAL PHYSICAL HEALTH DETERIORATION [None]
  - INFLUENZA [None]
  - RENAL FAILURE [None]
  - RESPIRATORY FAILURE [None]
